FAERS Safety Report 6946015-0 (Version None)
Quarter: 2010Q3

REPORT INFORMATION
  Report Type: 
  Country: None (occurrence: None)
  Receive Date: 20100827
  Receipt Date: 20100511
  Transmission Date: 20110219
  Serious: No
  Sender: FDA-Public Use
  Company Number: A0859248A

PATIENT
  Sex: Male

DRUGS (1)
  1. ACYCLOVIR SODIUM [Suspect]
     Indication: PRODUCT USED FOR UNKNOWN INDICATION
     Route: 065

REACTIONS (3)
  - PHOTOSENSITIVITY REACTION [None]
  - RASH [None]
  - URTICARIA [None]
